FAERS Safety Report 24540731 (Version 1)
Quarter: 2024Q4

REPORT INFORMATION
  Report Type: Spontaneous
  Country: US (occurrence: US)
  Receive Date: 20241023
  Receipt Date: 20241023
  Transmission Date: 20250115
  Serious: Yes (Other)
  Sender: BRACCO
  Company Number: US-BRACCO-2023US05940

PATIENT
  Age: 75 Year
  Sex: Female

DRUGS (6)
  1. MULTIHANCE [Suspect]
     Active Substance: GADOBENATE DIMEGLUMINE
     Indication: Magnetic resonance cholangiopancreatography
     Dosage: 14 ML, SINGLE
     Route: 042
     Dates: start: 20231114, end: 20231114
  2. ASPIRIN [Concomitant]
     Active Substance: ASPIRIN
  3. LOSARTAN [Concomitant]
     Active Substance: LOSARTAN
  4. NAPROXEN [Concomitant]
     Active Substance: NAPROXEN
  5. XIFAXAN [Concomitant]
     Active Substance: RIFAXIMIN
  6. XYZAL [Concomitant]
     Active Substance: LEVOCETIRIZINE DIHYDROCHLORIDE

REACTIONS (1)
  - Hypersensitivity [Recovered/Resolved]

NARRATIVE: CASE EVENT DATE: 20231114
